FAERS Safety Report 8024947-2 (Version None)
Quarter: 2012Q1

REPORT INFORMATION
  Report Type: 
  Country: None (occurrence: None)
  Receive Date: 20120105
  Receipt Date: 20111230
  Transmission Date: 20120608
  Serious: Yes (Hospitalization, Other)
  Sender: FDA-Public Use
  Company Number: PHHY2011US113602

PATIENT
  Age: 48 Year
  Sex: Male

DRUGS (3)
  1. SUCRALFATE [Suspect]
     Indication: GASTROINTESTINAL DISORDER
     Dosage: UNK
  2. CIPROFLOXACIN [Suspect]
     Indication: GASTROINTESTINAL DISORDER
     Dosage: UNK
  3. METRONIDAZOLE [Suspect]
     Indication: GASTROINTESTINAL DISORDER
     Dosage: UNK

REACTIONS (9)
  - PAIN [None]
  - PURPURA [None]
  - LEUKOCYTOCLASTIC VASCULITIS [None]
  - JOINT SWELLING [None]
  - SCROTAL OEDEMA [None]
  - INFLAMMATION [None]
  - ERYTHEMA [None]
  - BLISTER [None]
  - CELLULITIS [None]
